FAERS Safety Report 7979243-6 (Version None)
Quarter: 2011Q4

REPORT INFORMATION
  Report Type: 
  Country: None (occurrence: None)
  Receive Date: 20111214
  Receipt Date: 20111214
  Transmission Date: 20120403
  Serious: Yes (Other)
  Sender: FDA-Public Use
  Company Number: None

PATIENT
  Age: 30 Year
  Sex: Male
  Weight: 99.79 kg

DRUGS (1)
  1. CYMBALTA [Suspect]
     Indication: MAJOR DEPRESSION
     Dosage: 60MG
     Route: 048
     Dates: start: 20090401, end: 20111213

REACTIONS (5)
  - PARAESTHESIA [None]
  - DRUG WITHDRAWAL SYNDROME [None]
  - TREMOR [None]
  - MANIA [None]
  - DEPRESSION [None]
